FAERS Safety Report 9943159 (Version 1)
Quarter: 2014Q1

REPORT INFORMATION
  Report Type: Spontaneous
  Country: US (occurrence: US)
  Receive Date: 20140303
  Receipt Date: 20140303
  Transmission Date: 20141002
  Serious: Yes (Other)
  Sender: FDA-Public Use
  Company Number: US-GLAXOSMITHKLINE-A1062532A

PATIENT
  Sex: Female

DRUGS (2)
  1. WELLBUTRIN [Suspect]
     Indication: DEPRESSION
     Dosage: 300MG PER DAY
     Route: 048
  2. AMBIEN [Suspect]
     Indication: SLEEP DISORDER
     Dosage: 10MG PER DAY

REACTIONS (3)
  - Mental impairment [Unknown]
  - Confusional state [Recovered/Resolved]
  - Therapeutic response unexpected [Unknown]
